FAERS Safety Report 9517911 (Version 3)
Quarter: 2013Q4

REPORT INFORMATION
  Report Type: Spontaneous
  Country: US (occurrence: US)
  Receive Date: 20130912
  Receipt Date: 20131106
  Transmission Date: 20140711
  Serious: No
  Sender: FDA-Public Use
  Company Number: US-009507513-1308USA013452

PATIENT
  Age: 56 Year
  Sex: Female

DRUGS (4)
  1. PEGINTRON [Suspect]
     Indication: HEPATITIS C
     Dosage: REDIPEN, .5
     Dates: start: 20130826, end: 2013
  2. PEGINTRON [Suspect]
     Dosage: REDIPEN, .3
     Dates: start: 2013
  3. REBETOL [Suspect]
     Indication: HEPATITIS C
     Dosage: UNK
     Route: 048
     Dates: start: 20130826
  4. VICTRELIS [Suspect]
     Indication: HEPATITIS C
     Dosage: UNK
     Route: 048
     Dates: start: 20130929

REACTIONS (25)
  - Feeling cold [Unknown]
  - Memory impairment [Unknown]
  - Muscle spasms [Unknown]
  - Fatigue [Unknown]
  - Laboratory test abnormal [Unknown]
  - Platelet count decreased [Unknown]
  - Haemoglobin decreased [Unknown]
  - White blood cell count decreased [Unknown]
  - Asthenia [Unknown]
  - Fatigue [Unknown]
  - Chills [Unknown]
  - Influenza like illness [Unknown]
  - Nausea [Unknown]
  - Sleep disorder [Unknown]
  - Rash [Recovering/Resolving]
  - Platelet count decreased [Unknown]
  - White blood cell count decreased [Unknown]
  - Haematocrit decreased [Unknown]
  - Haemoglobin decreased [Unknown]
  - Red blood cell count decreased [Unknown]
  - Red cell distribution width increased [Unknown]
  - Alopecia [Unknown]
  - Rash [Unknown]
  - White blood cell count decreased [Unknown]
  - Platelet count decreased [Unknown]
